FAERS Safety Report 24108838 (Version 4)
Quarter: 2024Q3

REPORT INFORMATION
  Report Type: Report from Study
  Country: CL (occurrence: CL)
  Receive Date: 20240718
  Receipt Date: 20240808
  Transmission Date: 20241016
  Serious: Yes (Other)
  Sender: TAKEDA
  Company Number: CL-TAKEDA-2024TUS072044

PATIENT
  Age: 13 Year
  Sex: Male
  Weight: 47.5 kg

DRUGS (2)
  1. IDURSULFASE [Suspect]
     Active Substance: IDURSULFASE
     Indication: Mucopolysaccharidosis II
     Dosage: 0.5 MILLIGRAM/KILOGRAM, 1/WEEK
     Route: 042
  2. IDURSULFASE [Suspect]
     Active Substance: IDURSULFASE
     Indication: Supplementation therapy
     Dosage: UNK
     Route: 065

REACTIONS (4)
  - Seizure [Recovered/Resolved]
  - Expired product administered [Recovered/Resolved]
  - Urticaria [Recovering/Resolving]
  - Tremor [Recovered/Resolved]

NARRATIVE: CASE EVENT DATE: 20240701
